FAERS Safety Report 13539579 (Version 2)
Quarter: 2017Q2

REPORT INFORMATION
  Report Type: Spontaneous
  Country: FR (occurrence: FR)
  Receive Date: 20170512
  Receipt Date: 20170522
  Transmission Date: 20170830
  Serious: Yes (Death, Life-Threatening, Hospitalization, Other)
  Sender: FDA-Public Use
  Company Number: FR-VALIDUS PHARMACEUTICALS LLC-FR-2017VAL000718

PATIENT
  Age: 4 Day
  Sex: Female

DRUGS (3)
  1. CEFOTAXIME SODIUM [Suspect]
     Active Substance: CEFOTAXIME SODIUM
     Indication: BACILLUS INFECTION
     Dosage: UNK
     Route: 042
     Dates: start: 2013
  2. GENTAMICIN SULFATE. [Suspect]
     Active Substance: GENTAMICIN SULFATE
     Indication: BACILLUS INFECTION
     Dosage: UNK
     Route: 042
     Dates: start: 2013
  3. VANCOMYCIN [Suspect]
     Active Substance: VANCOMYCIN
     Indication: BACILLUS INFECTION
     Dosage: UNK
     Route: 042
     Dates: start: 2013

REACTIONS (3)
  - Drug ineffective [Fatal]
  - Bacillus infection [Fatal]
  - Pulmonary necrosis [Fatal]

NARRATIVE: CASE EVENT DATE: 2013
